FAERS Safety Report 5773552-7 (Version None)
Quarter: 2008Q2

REPORT INFORMATION
  Report Type: 
  Country: None (occurrence: None)
  Receive Date: 20080616
  Receipt Date: 20080610
  Transmission Date: 20081010
  Serious: Yes (Hospitalization, Other)
  Sender: FDA-Public Use
  Company Number: US-BAYER-200818231NA

PATIENT
  Age: 27 Year
  Sex: Female
  Weight: 65 kg

DRUGS (1)
  1. MIRENA [Suspect]
     Indication: CONTRACEPTION
     Route: 015
     Dates: start: 20070208, end: 20071217

REACTIONS (7)
  - ABDOMINAL PAIN [None]
  - IUD MIGRATION [None]
  - MENSTRUATION IRREGULAR [None]
  - NAUSEA [None]
  - PAIN [None]
  - PROCEDURAL PAIN [None]
  - VOMITING [None]
